FAERS Safety Report 7686646-6 (Version None)
Quarter: 2011Q3

REPORT INFORMATION
  Report Type: 
  Country: None (occurrence: None)
  Receive Date: 20110816
  Receipt Date: 20110816
  Transmission Date: 20111222
  Serious: Yes (Life-Threatening, Hospitalization)
  Sender: FDA-Public Use
  Company Number: None

PATIENT
  Sex: Female
  Weight: 41.73 kg

DRUGS (1)
  1. KEFLEX [Suspect]
     Indication: TOOTH ABSCESS
     Dosage: 500 MG
     Dates: start: 20110814, end: 20110814

REACTIONS (2)
  - URTICARIA [None]
  - DYSPNOEA [None]
